FAERS Safety Report 19143027 (Version 3)
Quarter: 2021Q2

REPORT INFORMATION
  Report Type: Spontaneous
  Country: GB (occurrence: GB)
  Receive Date: 20210416
  Receipt Date: 20210505
  Transmission Date: 20210717
  Serious: Yes (Hospitalization, Other)
  Sender: FDA-Public Use
  Company Number: GB-AUROBINDO-AUR-APL-2021-015380

PATIENT
  Age: 48 Year
  Sex: Female
  Weight: 51.4 kg

DRUGS (25)
  1. CARBOPLATIN. [Suspect]
     Active Substance: CARBOPLATIN
     Dosage: 4TH CYCLE
     Route: 065
     Dates: start: 20210215
  2. GLUCOSE MONOHYDRATE [Suspect]
     Active Substance: DEXTROSE MONOHYDRATE
     Indication: MEDICATION DILUTION
     Dosage: UNK (FIRST 3 CYCLES;CAELYX+5%GLUCOSE)
     Route: 065
  3. GLUCOSE MONOHYDRATE [Suspect]
     Active Substance: DEXTROSE MONOHYDRATE
     Dosage: FIRST 3 CYCLES;CAELYX+5%GLUCOSE
     Route: 065
  4. CAELYX [Suspect]
     Active Substance: DOXORUBICIN HYDROCHLORIDE
     Indication: OVARIAN CANCER
     Dosage: UNK (FIRST 3 CYCLES; CAELYX+5%GLUCOSE)
     Route: 065
  5. CAELYX [Suspect]
     Active Substance: DOXORUBICIN HYDROCHLORIDE
     Dosage: 4TH CYCLE, CAELYX 50MG+5% GLUCOSE 250 ML OVER1 HOUR(50MG); DOSAGE STRENGTH 50 MG/25 ML
     Route: 065
     Dates: start: 20210219
  6. DEXAMETHASONE. [Suspect]
     Active Substance: DEXAMETHASONE
     Indication: NAUSEA
     Dosage: UNK
     Route: 065
  7. METOCLOPRAMIDE. [Suspect]
     Active Substance: METOCLOPRAMIDE
     Indication: NAUSEA
     Dosage: UNK
     Route: 065
  8. DEXAMETHASONE. [Suspect]
     Active Substance: DEXAMETHASONE
     Indication: VOMITING
     Dosage: 4 MILLIGRAM, TWO TIMES A DAY
     Route: 048
     Dates: start: 20210220, end: 20210221
  9. GLUCOSE MONOHYDRATE [Suspect]
     Active Substance: DEXTROSE MONOHYDRATE
     Dosage: FIRST 3 CYCLES; CARBOPLATIN + 5% GLUCOSE
     Route: 065
  10. PARACETAMOL [Concomitant]
     Active Substance: ACETAMINOPHEN
     Dosage: 50 MILLIGRAM, FOUR TIMES/DAY (UP TO 1 G)
     Route: 048
  11. CARBOPLATIN. [Suspect]
     Active Substance: CARBOPLATIN
     Dosage: FIRST 3 CYCLES;CARBOPLATIN+5%GLUCOSE
     Route: 065
  12. METOCLOPRAMIDE. [Suspect]
     Active Substance: METOCLOPRAMIDE
     Indication: VOMITING
  13. CAELYX [Suspect]
     Active Substance: DOXORUBICIN HYDROCHLORIDE
     Dosage: FIRST 3 CYCLES; CAELYX+5%GLUCOSE; DOSAGE STRENGTH 50 MG/25 ML
     Route: 065
  14. CARBOPLATIN. [Suspect]
     Active Substance: CARBOPLATIN
     Indication: OVARIAN CANCER
     Dosage: UNK (FIRST 3 CYCLES;CARBOPLATIN+5%GLUCOSE)
     Route: 065
  15. COVID?19 VACCINE NOS. [Concomitant]
     Active Substance: COVID-19 VACCINE NOS
     Indication: COVID-19 PROPHYLAXIS
     Dosage: UNK (1 DOSE, STAT)
     Route: 030
     Dates: start: 20210221
  16. ONDANSETRON [Suspect]
     Active Substance: ONDANSETRON
     Indication: VOMITING
     Dosage: 8 MILLIGRAM, TWO TIMES A DAY
     Route: 048
     Dates: start: 20210220, end: 20210221
  17. CARBOPLATIN. [Suspect]
     Active Substance: CARBOPLATIN
     Dosage: 4TH CYCLE, CARBOPLATIN 450 MG + 5% GLUCOSE 545 ML GIVEN OVER 1 HOUR (450 MG)
     Route: 065
     Dates: start: 20210219
  18. GLUCOSE MONOHYDRATE [Suspect]
     Active Substance: DEXTROSE MONOHYDRATE
     Dosage: 4TH CYCLE; CARBOPLATIN 450 MG + 5% GLUCOSE 545 ML OVER 1 HOUR (500 ML)
     Route: 065
     Dates: start: 20210219
  19. PARACETAMOL [Concomitant]
     Active Substance: ACETAMINOPHEN
     Dosage: 500 MG?1 G UPTO FOUR TIMES A DAY, AS REQUIRED; NOT KNOWN?LONG TERM (4 IN 1 D)
     Route: 048
  20. ONDANSETRON [Suspect]
     Active Substance: ONDANSETRON
     Indication: NAUSEA
     Dosage: UNK
     Route: 065
  21. CAELYX [Suspect]
     Active Substance: DOXORUBICIN HYDROCHLORIDE
     Dosage: 4TH CYCLE; ; DOSAGE STRENGTH 50 MG/25 ML
     Route: 065
     Dates: start: 20210215
  22. DEXAMETHASONE. [Suspect]
     Active Substance: DEXAMETHASONE
     Indication: VOMITING
  23. METOCLOPRAMIDE. [Suspect]
     Active Substance: METOCLOPRAMIDE
     Indication: VOMITING
     Dosage: UP TO 3 TIMES A DAY, AS REQUIRED
     Route: 048
     Dates: start: 20201113
  24. METOCLOPRAMIDE. [Suspect]
     Active Substance: METOCLOPRAMIDE
     Indication: NAUSEA
  25. PARACETAMOL [Concomitant]
     Active Substance: ACETAMINOPHEN
     Indication: PAIN
     Dosage: UNK (500 MG?1 G UPTO FOUR TIMES A DAY, AS REQUIRED; NOT KNOWN?LONG TERM (4 IN 1 D))
     Route: 048

REACTIONS (6)
  - Neutropenic sepsis [Recovering/Resolving]
  - Vitamin B12 deficiency [Unknown]
  - Myelosuppression [Unknown]
  - Mouth ulceration [Unknown]
  - Folate deficiency [Unknown]
  - Pancytopenia [Recovering/Resolving]

NARRATIVE: CASE EVENT DATE: 202103
